FAERS Safety Report 23992170 (Version 1)
Quarter: 2024Q2

REPORT INFORMATION
  Report Type: Report from Study
  Country: JP (occurrence: JP)
  Receive Date: 20240620
  Receipt Date: 20240620
  Transmission Date: 20240716
  Serious: Yes (Other)
  Sender: FDA-Public Use
  Company Number: JP-ROCHE-3579714

PATIENT

DRUGS (2)
  1. ATEZOLIZUMAB [Suspect]
     Active Substance: ATEZOLIZUMAB
     Indication: Hepatocellular carcinoma
     Route: 041
  2. BEVACIZUMAB [Suspect]
     Active Substance: BEVACIZUMAB
     Indication: Hepatocellular carcinoma
     Route: 042

REACTIONS (32)
  - Gastrointestinal haemorrhage [Unknown]
  - Hypertension [Unknown]
  - Proteinuria [Unknown]
  - Malaise [Unknown]
  - Liver injury [Unknown]
  - Bleeding varicose vein [Unknown]
  - Decreased appetite [Unknown]
  - Immune-mediated adrenal insufficiency [Unknown]
  - Diarrhoea [Unknown]
  - Cardiac failure [Unknown]
  - Interstitial lung disease [Unknown]
  - Hepatic encephalopathy [Unknown]
  - Stevens-Johnson syndrome [Unknown]
  - Platelet count decreased [Unknown]
  - Cholangitis [Unknown]
  - Sepsis [Unknown]
  - Appendicitis [Unknown]
  - Stomatitis [Unknown]
  - Thrombophlebitis migrans [Unknown]
  - Varicose vein ruptured [Unknown]
  - Gastric ulcer haemorrhage [Unknown]
  - Small intestinal haemorrhage [Unknown]
  - Haemorrhage [Unknown]
  - Lower gastrointestinal haemorrhage [Unknown]
  - Tumour haemorrhage [Unknown]
  - Cystitis haemorrhagic [Unknown]
  - Epistaxis [Unknown]
  - Purpura [Unknown]
  - Haemoptysis [Unknown]
  - Gingival bleeding [Unknown]
  - Conjunctival haemorrhage [Unknown]
  - Haemorrhoidal haemorrhage [Unknown]
